FAERS Safety Report 6252032-9 (Version None)
Quarter: 2009Q2

REPORT INFORMATION
  Report Type: 
  Country: None (occurrence: None)
  Receive Date: 20090630
  Receipt Date: 20040924
  Transmission Date: 20091009
  Serious: Yes (Hospitalization)
  Sender: FDA-Public Use
  Company Number: US-ROCHE-638565

PATIENT
  Sex: Male

DRUGS (6)
  1. ENFUVIRTIDE [Suspect]
     Indication: HIV INFECTION
     Route: 065
     Dates: start: 20040513, end: 20041108
  2. NORVIR [Concomitant]
     Dates: start: 20031010, end: 20051201
  3. CRIXIVAN [Concomitant]
     Dates: start: 20040510, end: 20051201
  4. VIRAMUNE [Concomitant]
     Dates: start: 20040510, end: 20051201
  5. VIREAD [Concomitant]
     Dosage: FREQUENCY: QD (EVERY DAY)
     Dates: start: 20040510, end: 20051201
  6. DIFLUCAN [Concomitant]
     Dosage: FREQUENCY: QD (EVERY DAY)
     Dates: start: 20040913, end: 20040923

REACTIONS (1)
  - ASTHMA [None]
